FAERS Safety Report 4355366-8 (Version None)
Quarter: 2004Q2

REPORT INFORMATION
  Report Type: 
  Country: None (occurrence: None)
  Receive Date: 20040504
  Receipt Date: 20040428
  Transmission Date: 20050107
  Serious: Yes (Death)
  Sender: FDA-Public Use
  Company Number: US-JNJFOC-20040302788

PATIENT
  Age: 51 Year
  Sex: Male
  Weight: 95 kg

DRUGS (1)
  1. PANCREASE (PANCREALIPASE) UNSPECIFIED [Suspect]
     Indication: DYSPEPSIA

REACTIONS (1)
  - DEATH [None]
